FAERS Safety Report 4852513-6 (Version None)
Quarter: 2005Q4

REPORT INFORMATION
  Report Type: 
  Country: None (occurrence: None)
  Receive Date: 20051213
  Receipt Date: 20051206
  Transmission Date: 20060501
  Serious: Yes (Hospitalization)
  Sender: FDA-Public Use
  Company Number: US-AVENTIS-200520768GDDC

PATIENT
  Age: 66 Year
  Sex: Male
  Weight: 85 kg

DRUGS (2)
  1. DOCETAXEL [Suspect]
     Indication: NON-SMALL CELL LUNG CANCER STAGE IV
     Route: 042
     Dates: start: 20051028, end: 20051125
  2. NAVELBINE [Suspect]
     Indication: NON-SMALL CELL LUNG CANCER STAGE IV
     Dates: start: 20051028, end: 20051125

REACTIONS (3)
  - DEHYDRATION [None]
  - HYPOTENSION [None]
  - PYREXIA [None]
